FAERS Safety Report 7612317-8 (Version None)
Quarter: 2011Q3

REPORT INFORMATION
  Report Type: 
  Country: None (occurrence: None)
  Receive Date: 20110715
  Receipt Date: 20110705
  Transmission Date: 20111222
  Serious: Yes (Hospitalization, Other)
  Sender: FDA-Public Use
  Company Number: JP-CELGENEUS-087-21880-11011438

PATIENT
  Sex: Female
  Weight: 61.2 kg

DRUGS (27)
  1. REVLIMID [Suspect]
     Dosage: 15 MILLIGRAM
     Route: 048
     Dates: start: 20101118, end: 20101201
  2. REVLIMID [Suspect]
     Dosage: 10 MILLIGRAM
     Route: 048
     Dates: start: 20110204, end: 20110217
  3. DEXAMETHASONE [Suspect]
     Dosage: 40 MILLIGRAM
     Route: 048
     Dates: start: 20110107, end: 20110128
  4. DEXAMETHASONE [Suspect]
     Dosage: 40 MILLIGRAM
     Route: 048
     Dates: start: 20110204, end: 20110211
  5. URSO 250 [Concomitant]
     Dosage: 300 MILLIGRAM
     Route: 065
     Dates: start: 20100805, end: 20100826
  6. MUCOSOLVAN [Concomitant]
     Dosage: 45 MILLIGRAM
     Route: 048
     Dates: start: 20110324
  7. MUCODYNE [Concomitant]
     Dosage: 1500 MILLIGRAM
     Route: 065
     Dates: start: 20100805, end: 20100826
  8. METHYCOBAL [Concomitant]
     Dosage: 1500 MICROGRAM
     Route: 065
     Dates: start: 20100805, end: 20100826
  9. LYRICA [Concomitant]
     Dosage: 450 MILLIGRAM
     Route: 048
     Dates: start: 20110106
  10. TORSEMIDE [Concomitant]
     Indication: CARDIAC FAILURE
     Dosage: 2 MILLIGRAM
     Route: 065
     Dates: start: 20100805, end: 20100826
  11. SULFAMETHOXAZOLE [Concomitant]
     Indication: PROPHYLAXIS
     Route: 048
     Dates: start: 20110106
  12. ASPIRIN [Concomitant]
     Indication: PROPHYLAXIS
     Dosage: 100 MILLIGRAM
     Route: 048
     Dates: start: 20110513
  13. REVLIMID [Suspect]
     Dosage: 10 MILLIGRAM
     Route: 048
     Dates: start: 20110415, end: 20110428
  14. LANSOPRAZOLE [Concomitant]
     Dosage: 15 MILLIGRAM
     Route: 065
     Dates: start: 20100805, end: 20100826
  15. DEXAMETHASONE [Suspect]
     Dosage: 40 MILLIGRAM
     Route: 048
     Dates: start: 20100805, end: 20100824
  16. DEXAMETHASONE [Suspect]
     Dosage: 40 MILLIGRAM
     Route: 048
     Dates: start: 20110415, end: 20110422
  17. WARFARIN SODIUM [Concomitant]
     Indication: PROPHYLAXIS
     Dosage: 15 MILLIGRAM
     Route: 065
     Dates: start: 20100805, end: 20100826
  18. LANTUS [Concomitant]
     Indication: DIABETES MELLITUS
     Dosage: 14 UNITS
     Route: 058
     Dates: start: 20110106, end: 20110413
  19. REVLIMID [Suspect]
     Dosage: 25 MILLIGRAM
     Route: 048
     Dates: start: 20100805, end: 20100826
  20. REVLIMID [Suspect]
     Dosage: 15 MILLIGRAM
     Route: 048
     Dates: start: 20101021, end: 20101110
  21. REVLIMID [Suspect]
     Dosage: 10 MILLIGRAM
     Route: 048
     Dates: start: 20110107, end: 20110127
  22. DEXAMETHASONE [Suspect]
     Dosage: 40 MILLIGRAM
     Route: 048
     Dates: start: 20101118, end: 20101201
  23. OXYCONTIN [Concomitant]
     Dosage: 160 MILLIGRAM
     Route: 048
     Dates: start: 20110106
  24. LEVEMIR [Concomitant]
     Indication: DIABETES MELLITUS
     Dosage: 14 UNITS
     Route: 058
     Dates: start: 20110414
  25. DEXAMETHASONE [Suspect]
     Dosage: 40 MILLIGRAM
     Route: 048
     Dates: start: 20101021, end: 20101110
  26. LYRICA [Concomitant]
     Dosage: 300 MILLIGRAM
     Route: 065
     Dates: start: 20100805, end: 20100826
  27. OXYCONTIN [Concomitant]
     Indication: MULTIPLE MYELOMA
     Dosage: 200 MILLIGRAM
     Route: 065
     Dates: start: 20100805, end: 20100826

REACTIONS (8)
  - HERPES ZOSTER [None]
  - ANAEMIA [None]
  - BRONCHITIS [None]
  - BLOOD CREATININE INCREASED [None]
  - PLATELET COUNT DECREASED [None]
  - PNEUMONIA [None]
  - NEUTROPHIL COUNT DECREASED [None]
  - ASTHMA [None]
